FAERS Safety Report 24427022 (Version 1)
Quarter: 2024Q4

REPORT INFORMATION
  Report Type: Report from Study
  Country: US (occurrence: US)
  Receive Date: 20241011
  Receipt Date: 20241011
  Transmission Date: 20250114
  Serious: Yes (Other)
  Sender: TAKEDA
  Company Number: US-TAKEDA-US202014129

PATIENT
  Age: 68 Year
  Sex: Female

DRUGS (2)
  1. HUMAN IMMUNOGLOBULIN G\HYALURONIDASE RECOMBINANT HUMAN [Suspect]
     Active Substance: HUMAN IMMUNOGLOBULIN G\HYALURONIDASE (HUMAN RECOMBINANT)
     Indication: Primary immunodeficiency syndrome
     Dosage: 40 GRAM, MONTHLY
     Route: 065
  2. HUMAN IMMUNOGLOBULIN G\HYALURONIDASE RECOMBINANT HUMAN [Suspect]
     Active Substance: HUMAN IMMUNOGLOBULIN G\HYALURONIDASE (HUMAN RECOMBINANT)
     Indication: Hypogammaglobulinaemia
     Dosage: UNK
     Route: 058

REACTIONS (6)
  - Cardiac failure congestive [Unknown]
  - COVID-19 [Recovering/Resolving]
  - Weight increased [Unknown]
  - Inappropriate schedule of product administration [Unknown]
  - Arthralgia [Unknown]
  - Bronchitis [Unknown]

NARRATIVE: CASE EVENT DATE: 20200201
